FAERS Safety Report 14636782 (Version 5)
Quarter: 2018Q3

REPORT INFORMATION
  Report Type: Spontaneous
  Country: US (occurrence: US)
  Receive Date: 20180314
  Receipt Date: 20180820
  Transmission Date: 20181010
  Serious: No
  Sender: FDA-Public Use
  Company Number: US-ASTRAZENECA-2018SE31129

PATIENT
  Age: 59 Year
  Sex: Female
  Weight: 85.7 kg

DRUGS (5)
  1. LANTUS [Concomitant]
     Active Substance: INSULIN GLARGINE
     Indication: TYPE 2 DIABETES MELLITUS
  2. BYDUREON [Suspect]
     Active Substance: EXENATIDE
     Indication: TYPE 2 DIABETES MELLITUS
     Route: 058
     Dates: start: 2018
  3. NOVOLOG [Concomitant]
     Active Substance: INSULIN ASPART
     Indication: TYPE 2 DIABETES MELLITUS
     Dosage: 4 TO 8 UNITS ON A SLIDING SCALE DEPENDING ON HER BLOOD SUGAR, FREQUENCY IS 3 TIMES A DAY
  4. INSULIN [Concomitant]
     Active Substance: INSULIN NOS
     Dates: start: 2018
  5. BYDUREON BCISE [Suspect]
     Active Substance: EXENATIDE
     Indication: TYPE 2 DIABETES MELLITUS
     Route: 058
     Dates: start: 2018

REACTIONS (5)
  - Intentional device misuse [Unknown]
  - Injection site extravasation [Not Recovered/Not Resolved]
  - Product quality issue [Unknown]
  - Underdose [Not Recovered/Not Resolved]
  - Injection site mass [Unknown]

NARRATIVE: CASE EVENT DATE: 2018
